FAERS Safety Report 6244012-4 (Version None)
Quarter: 2009Q2

REPORT INFORMATION
  Report Type: 
  Country: None (occurrence: None)
  Receive Date: 20090623
  Receipt Date: 20090609
  Transmission Date: 20091009
  Serious: Yes (Death, Life-Threatening, Other)
  Sender: FDA-Public Use
  Company Number: 2009-02289

PATIENT
  Age: 59 Year
  Sex: Female
  Weight: 84 kg

DRUGS (5)
  1. VELCADE [Suspect]
     Indication: MULTIPLE MYELOMA
     Dosage: 2.5 MG, INTRAVENOUS
     Route: 042
     Dates: start: 20071011, end: 20071130
  2. CODEINE SUL TAB [Concomitant]
  3. DEXAMETHASONE [Concomitant]
  4. FLUDROCORTISONE ACETATE [Concomitant]
  5. LOPERAMIDE    (LOPERAMIDE) [Concomitant]

REACTIONS (4)
  - DIARRHOEA [None]
  - DISEASE PROGRESSION [None]
  - MULTIPLE MYELOMA [None]
  - ORTHOSTATIC HYPOTENSION [None]
